FAERS Safety Report 8250094-0 (Version None)
Quarter: 2012Q2

REPORT INFORMATION
  Report Type: 
  Country: None (occurrence: None)
  Receive Date: 20120402
  Receipt Date: 20120330
  Transmission Date: 20120825
  Serious: Yes (Other)
  Sender: FDA-Public Use
  Company Number: US-PFIZER INC-2012081792

PATIENT
  Sex: Female
  Weight: 62.585 kg

DRUGS (4)
  1. LIPITOR [Suspect]
     Indication: BLOOD CHOLESTEROL INCREASED
     Dosage: 10 MG, DAILY
  2. LEVOTHYROXINE [Concomitant]
     Indication: THYROID DISORDER
     Dosage: 25 UG, DAILY
  3. ZOLOFT [Concomitant]
     Indication: DEPRESSION
     Dosage: 25 MG, 2X/DAY
  4. METOPROLOL [Concomitant]
     Indication: CARDIAC DISORDER
     Dosage: 50 MG, DAILY

REACTIONS (1)
  - TRANSIENT ISCHAEMIC ATTACK [None]
